FAERS Safety Report 12401141 (Version 1)
Quarter: 2016Q2

REPORT INFORMATION
  Report Type: Spontaneous
  Country: US (occurrence: None)
  Receive Date: 20160524
  Receipt Date: 20160524
  Transmission Date: 20160815
  Serious: No
  Sender: FDA-Public Use
  Company Number: None

PATIENT
  Age: 75 Year
  Sex: Male
  Weight: 82.7 kg

DRUGS (8)
  1. ACTIGALL [Concomitant]
     Active Substance: URSODIOL
  2. DEFINITY [Suspect]
     Active Substance: PERFLUTREN
     Indication: SCAN WITH CONTRAST
     Dosage: INTRAVENOUS (NOT OTHERWISE SPECIFIED)
     Route: 042
     Dates: start: 20160203, end: 20160203
  3. CIALIS [Concomitant]
     Active Substance: TADALAFIL
  4. VITAMIN B12 [Concomitant]
     Active Substance: CYANOCOBALAMIN
  5. VITAMIN D [Concomitant]
     Active Substance: CHOLECALCIFEROL
  6. DEFINITY [Suspect]
     Active Substance: PERFLUTREN
     Indication: ECHOCARDIOGRAM
     Dosage: INTRAVENOUS (NOT OTHERWISE SPECIFIED)
     Route: 042
     Dates: start: 20160203, end: 20160203
  7. AZACITIDINE (VIDAZA) [Concomitant]
  8. SIMVASTATIN (ZOCOR) [Concomitant]

REACTIONS (2)
  - Paraesthesia [None]
  - Hypoaesthesia [None]

NARRATIVE: CASE EVENT DATE: 20160203
